FAERS Safety Report 6910181-3 (Version None)
Quarter: 2010Q3

REPORT INFORMATION
  Report Type: 
  Country: None (occurrence: None)
  Receive Date: 20100806
  Receipt Date: 20100723
  Transmission Date: 20110219
  Serious: Yes (Hospitalization)
  Sender: FDA-Public Use
  Company Number: DE-ELI_LILLY_AND_COMPANY-DE201006003089

PATIENT
  Age: 42 Year
  Sex: Male
  Weight: 84 kg

DRUGS (2)
  1. ZYPREXA [Suspect]
     Indication: BIPOLAR DISORDER
     Dosage: UNK, UNKNOWN
  2. ZYPREXA [Suspect]
     Dosage: 15 MG, UNK
     Route: 048
     Dates: start: 20091101

REACTIONS (4)
  - BLOOD CREATINE PHOSPHOKINASE INCREASED [None]
  - HOSPITALISATION [None]
  - INCREASED APPETITE [None]
  - WEIGHT INCREASED [None]
